FAERS Safety Report 12432577 (Version 1)
Quarter: 2016Q2

REPORT INFORMATION
  Report Type: Spontaneous
  Country: None (occurrence: None)
  Receive Date: 20160602
  Receipt Date: 20160602
  Transmission Date: 20160815
  Serious: Yes (Disabling, Other)
  Sender: FDA-Public Use
  Company Number: None

PATIENT
  Age: 65 Year
  Sex: Female
  Weight: 72.58 kg

DRUGS (6)
  1. ATENOLOL. [Concomitant]
     Active Substance: ATENOLOL
  2. IMODIUM [Concomitant]
     Active Substance: LOPERAMIDE HYDROCHLORIDE
  3. LEVAQUIN [Suspect]
     Active Substance: LEVOFLOXACIN
     Indication: POSTOPERATIVE CARE
     Dosage: 2 PILLS TWICE DAILY BY MOUTH
     Route: 048
     Dates: start: 20151026, end: 20151130
  4. NATURAL ... PRESSURE MEDICINE [Concomitant]
  5. LYSINE [Concomitant]
     Active Substance: LYSINE
  6. PROBIOTIC [Concomitant]
     Active Substance: PROBIOTICS NOS

REACTIONS (13)
  - Oesophagitis [None]
  - Pain [None]
  - Abdominal distension [None]
  - Hypoaesthesia [None]
  - Neuropathy peripheral [None]
  - Gait disturbance [None]
  - Tendonitis [None]
  - Gastritis [None]
  - Abdominal discomfort [None]
  - Burning sensation [None]
  - Haemorrhoidal haemorrhage [None]
  - Diverticulum [None]
  - Muscle spasms [None]

NARRATIVE: CASE EVENT DATE: 20151026
